FAERS Safety Report 9104128 (Version 1)
Quarter: 2013Q1

REPORT INFORMATION
  Report Type: Spontaneous
  Country: GB (occurrence: GB)
  Receive Date: 20130219
  Receipt Date: 20130219
  Transmission Date: 20140127
  Serious: Yes (Other)
  Sender: FDA-Public Use
  Company Number: PHFR2013GB001225

PATIENT
  Sex: Male

DRUGS (2)
  1. CLOZARIL [Suspect]
     Indication: SCHIZOPHRENIA
     Dosage: 700 MG, HS
     Route: 048
     Dates: start: 20111011
  2. LITHIUM [Suspect]

REACTIONS (4)
  - Toxicity to various agents [Unknown]
  - Diarrhoea [Unknown]
  - Hypophagia [Unknown]
  - Malaise [Unknown]
